FAERS Safety Report 20038090 (Version 2)
Quarter: 2022Q1

REPORT INFORMATION
  Report Type: Spontaneous
  Country: JP (occurrence: JP)
  Receive Date: 20211105
  Receipt Date: 20220203
  Transmission Date: 20220423
  Serious: Yes (Hospitalization, Other)
  Sender: FDA-Public Use
  Company Number: JP-002147023-NVSJ2021JP017824

PATIENT

DRUGS (1)
  1. RUXOLITINIB [Suspect]
     Active Substance: RUXOLITINIB
     Indication: Polycythaemia vera
     Dosage: UNK
     Route: 048

REACTIONS (4)
  - Malignant neoplasm progression [Recovering/Resolving]
  - Polycythaemia vera [Recovering/Resolving]
  - Necrotising colitis [Recovering/Resolving]
  - Portal vein thrombosis [Recovering/Resolving]
